FAERS Safety Report 6111780-1 (Version None)
Quarter: 2009Q1

REPORT INFORMATION
  Report Type: 
  Country: None (occurrence: None)
  Receive Date: 20090311
  Receipt Date: 20090309
  Transmission Date: 20090719
  Serious: Yes (Death, Other)
  Sender: FDA-Public Use
  Company Number: PHHY2009IN08501

PATIENT
  Age: 5 Year
  Sex: Male

DRUGS (1)
  1. ASUNRA [Suspect]
     Dosage: 2 TABLETS OF 400MG DAILY

REACTIONS (6)
  - COUGH [None]
  - DEATH [None]
  - DISSEMINATED INTRAVASCULAR COAGULATION [None]
  - NASOPHARYNGITIS [None]
  - PYREXIA [None]
  - VOMITING [None]
